FAERS Safety Report 14868688 (Version 2)
Quarter: 2018Q2

REPORT INFORMATION
  Report Type: Spontaneous
  Country: US (occurrence: US)
  Receive Date: 20180509
  Receipt Date: 20180606
  Transmission Date: 20180711
  Serious: No
  Sender: FDA-Public Use
  Company Number: US-PFIZER INC-2018185055

PATIENT
  Age: 67 Year
  Sex: Male

DRUGS (3)
  1. REMODULIN [Suspect]
     Active Substance: TREPROSTINIL
     Indication: PULMONARY ARTERIAL HYPERTENSION
     Dosage: 0.05 UG/KG, (50 NG/KG/MIN, 0.05 UG/KG (INFUSION RATE 0.034 ML/HR)
     Route: 058
     Dates: start: 20171031
  2. SILDENAFIL CITRATE. [Suspect]
     Active Substance: SILDENAFIL CITRATE
     Dosage: UNK
  3. SILDENAFIL CITRATE. [Suspect]
     Active Substance: SILDENAFIL CITRATE
     Dosage: 2 DF, DAILY
     Dates: start: 20180322, end: 20180417

REACTIONS (8)
  - Weight increased [Unknown]
  - Feeding disorder [Unknown]
  - Night sweats [Not Recovered/Not Resolved]
  - Decreased appetite [Unknown]
  - Oedema [Unknown]
  - Diarrhoea [Unknown]
  - Weight decreased [Unknown]
  - Nausea [Unknown]

NARRATIVE: CASE EVENT DATE: 2018
